FAERS Safety Report 8313852-X (Version None)
Quarter: 2012Q2

REPORT INFORMATION
  Report Type: 
  Country: None (occurrence: None)
  Receive Date: 20120426
  Receipt Date: 20120418
  Transmission Date: 20120825
  Serious: Yes (Hospitalization)
  Sender: FDA-Public Use
  Company Number: US-SANOFI-AVENTIS-2012SA026954

PATIENT
  Age: 74 Year
  Sex: Male
  Weight: 84 kg

DRUGS (5)
  1. PLAVIX [Suspect]
     Route: 048
  2. MULTI-VITAMINS [Concomitant]
  3. METOPROLOL TARTRATE [Concomitant]
  4. LEVOFLOXACIN [Concomitant]
  5. SACCHAROMYCES BOULARDII [Concomitant]

REACTIONS (1)
  - PNEUMONIA [None]
